FAERS Safety Report 18556264 (Version 1)
Quarter: 2020Q4

REPORT INFORMATION
  Report Type: Report from Study
  Country: None (occurrence: US)
  Receive Date: 20201128
  Receipt Date: 20201128
  Transmission Date: 20210114
  Serious: Yes (Hospitalization, Other)
  Sender: FDA-Public Use
  Company Number: US-ABBVIE-20K-163-3635258-00

PATIENT
  Age: 61 Year
  Sex: Male

DRUGS (2)
  1. HUMIRA [Suspect]
     Active Substance: ADALIMUMAB
     Route: 058
     Dates: start: 202005
  2. HUMIRA [Suspect]
     Active Substance: ADALIMUMAB
     Indication: RHEUMATOID ARTHRITIS
     Route: 058
     Dates: start: 201902

REACTIONS (5)
  - Rheumatoid arthritis [Recovering/Resolving]
  - Scar [Recovering/Resolving]
  - Knee arthroplasty [Unknown]
  - Joint lock [Recovered/Resolved]
  - Rheumatoid nodule [Recovered/Resolved]

NARRATIVE: CASE EVENT DATE: 202010
